FAERS Safety Report 21842860 (Version 1)
Quarter: 2023Q1

REPORT INFORMATION
  Report Type: Spontaneous
  Country: US (occurrence: US)
  Receive Date: 20230110
  Receipt Date: 20230110
  Transmission Date: 20230418
  Serious: Yes (Hospitalization)
  Sender: FDA-Public Use
  Company Number: US-PFIZER INC-202300006954

PATIENT
  Age: 81 Year
  Sex: Male
  Weight: 63.039 kg

DRUGS (4)
  1. VYNDAMAX [Suspect]
     Active Substance: TAFAMIDIS
     Indication: Amyloidosis
     Dosage: 61 MG, 1X/DAY
  2. FUROSEMIDE [Suspect]
     Active Substance: FUROSEMIDE
     Dosage: 40 MG, 2X/DAY (TWO TABLETS A DAY)
  3. METOLAZONE [Concomitant]
     Active Substance: METOLAZONE
     Indication: Malaise
     Dosage: 5 MG, TWO TABLETS
     Route: 048
  4. METOLAZONE [Concomitant]
     Active Substance: METOLAZONE
     Dosage: INCREASED TO 3 TABLETS

REACTIONS (9)
  - Fluid retention [Not Recovered/Not Resolved]
  - Gait disturbance [Unknown]
  - Red blood cell count decreased [Unknown]
  - Haemoglobin decreased [Unknown]
  - Haematocrit decreased [Unknown]
  - Red cell distribution width increased [Unknown]
  - Weight decreased [Unknown]
  - Body height decreased [Unknown]
  - Off label use [Unknown]
